FAERS Safety Report 9473058 (Version 1)
Quarter: 2013Q3

REPORT INFORMATION
  Report Type: Spontaneous
  Country: US (occurrence: US)
  Receive Date: 20130823
  Receipt Date: 20130823
  Transmission Date: 20140515
  Serious: No
  Sender: FDA-Public Use
  Company Number: US-BRISTOL-MYERS SQUIBB COMPANY-17387309

PATIENT
  Age: 64 Year
  Sex: Male
  Weight: 70.29 kg

DRUGS (7)
  1. SPRYCEL [Suspect]
     Indication: CHRONIC MYELOID LEUKAEMIA
     Route: 048
     Dates: start: 20130111
  2. COREG [Concomitant]
  3. FUROSEMIDE [Concomitant]
  4. POTASSIUM [Concomitant]
  5. ASPIRIN [Concomitant]
     Dosage: 1 DF-81 (UNIT NOS)
  6. CARVEDILOL [Concomitant]
  7. LISINOPRIL [Concomitant]

REACTIONS (1)
  - Fatigue [Unknown]
